FAERS Safety Report 6778683-0 (Version None)
Quarter: 2010Q2

REPORT INFORMATION
  Report Type: 
  Country: None (occurrence: None)
  Receive Date: 20100618
  Receipt Date: 20100609
  Transmission Date: 20101027
  Serious: Yes (Other)
  Sender: FDA-Public Use
  Company Number: GB-TEVA-237311ISR

PATIENT
  Age: 70 Year
  Sex: Female

DRUGS (3)
  1. VALPROIC ACID [Suspect]
  2. CLOBAZAM [Suspect]
  3. LEVETIRACETAM [Suspect]

REACTIONS (1)
  - ENCEPHALITIS [None]
